FAERS Safety Report 4904843-7 (Version None)
Quarter: 2006Q1

REPORT INFORMATION
  Report Type: 
  Country: None (occurrence: None)
  Receive Date: 20060208
  Receipt Date: 20051011
  Transmission Date: 20060701
  Serious: No
  Sender: FDA-Public Use
  Company Number: US-GLAXOSMITHKLINE-A0577872A

PATIENT
  Age: 38 Year
  Sex: Female

DRUGS (4)
  1. PAXIL [Suspect]
     Dosage: 10MG PER DAY
     Route: 048
  2. PREVACID [Concomitant]
  3. MAXIFED [Concomitant]
  4. VITAMINS [Concomitant]

REACTIONS (1)
  - HEART RATE INCREASED [None]
